FAERS Safety Report 9203669 (Version 1)
Quarter: 2013Q1

REPORT INFORMATION
  Report Type: Spontaneous
  Country: US (occurrence: None)
  Receive Date: 20130329
  Receipt Date: 20130329
  Transmission Date: 20140127
  Serious: Yes (Other)
  Sender: FDA-Public Use
  Company Number: None

PATIENT
  Age: 69 Year
  Sex: Female
  Weight: 45.36 kg

DRUGS (1)
  1. LAMOTRIGINE [Suspect]
     Indication: DEPRESSION
     Dosage: 1 QHS PO
     Route: 048
     Dates: start: 20130321, end: 20130321

REACTIONS (1)
  - Musculoskeletal stiffness [None]
